FAERS Safety Report 6678734-8 (Version None)
Quarter: 2010Q2

REPORT INFORMATION
  Report Type: 
  Country: None (occurrence: None)
  Receive Date: 20100408
  Receipt Date: 20100325
  Transmission Date: 20101027
  Serious: Yes (Death, Hospitalization)
  Sender: FDA-Public Use
  Company Number: 2010000675

PATIENT
  Age: 62 Year
  Sex: Male

DRUGS (2)
  1. ERLOTINIB HYDROCHLORIDE [Suspect]
     Indication: HEPATIC NEOPLASM MALIGNANT
     Dosage: (MG,QD), ORAL
     Route: 048
     Dates: end: 20100108
  2. SORAFENIB [Suspect]
     Indication: HEPATIC NEOPLASM MALIGNANT
     Dosage: (MG), ORAL
     Route: 048
     Dates: end: 20100108

REACTIONS (2)
  - HEPATIC ENCEPHALOPATHY [None]
  - MALIGNANT NEOPLASM PROGRESSION [None]
